APPROVED DRUG PRODUCT: DELSTRIGO
Active Ingredient: DORAVIRINE; LAMIVUDINE; TENOFOVIR DISOPROXIL FUMARATE
Strength: 100MG;300MG;300MG
Dosage Form/Route: TABLET;ORAL
Application: N210807 | Product #001
Applicant: MERCK SHARP AND DOHME CORP A SUB OF MERCK AND CO INC
Approved: Aug 30, 2018 | RLD: Yes | RS: Yes | Type: RX

PATENTS:
Patent 8486975 | Expires: Aug 30, 2032
Patent 8486975 | Expires: Aug 30, 2032
Patent 8486975 | Expires: Aug 30, 2032
Patent 10603282 | Expires: Nov 29, 2036
Patent 10842751 | Expires: Nov 29, 2036